FAERS Safety Report 13358883 (Version 1)
Quarter: 2017Q1

REPORT INFORMATION
  Report Type: Spontaneous
  Country: ES (occurrence: ES)
  Receive Date: 20170322
  Receipt Date: 20170322
  Transmission Date: 20170429
  Serious: Yes (Other)
  Sender: FDA-Public Use
  Company Number: ES-GLAXOSMITHKLINE-ES2017039125

PATIENT
  Age: 44 Year
  Sex: Female
  Weight: 165 kg

DRUGS (1)
  1. NUCALA [Suspect]
     Active Substance: MEPOLIZUMAB
     Indication: ASTHMA
     Dosage: 100 MG, UNK ONCE MONTHLY
     Route: 058
     Dates: start: 20170202, end: 20170303

REACTIONS (3)
  - Hypoxia [Recovered/Resolved]
  - Headache [Recovered/Resolved]
  - Asthma [Unknown]

NARRATIVE: CASE EVENT DATE: 20170202
